FAERS Safety Report 10600972 (Version 4)
Quarter: 2014Q4

REPORT INFORMATION
  Report Type: Spontaneous
  Country: US (occurrence: US)
  Receive Date: 20141124
  Receipt Date: 20141222
  Transmission Date: 20150529
  Serious: No
  Sender: FDA-Public Use
  Company Number: US-009507513-1411USA009014

PATIENT
  Sex: Female
  Weight: 73.92 kg

DRUGS (1)
  1. NEXPLANON [Suspect]
     Active Substance: ETONOGESTREL
     Indication: CONTRACEPTION
     Dosage: 68 MG, ONCE EVERY 3 YEARS
     Route: 059
     Dates: start: 201404, end: 20141118

REACTIONS (2)
  - No adverse event [Unknown]
  - Device breakage [Recovered/Resolved]
